FAERS Safety Report 13003391 (Version 1)
Quarter: 2016Q4

REPORT INFORMATION
  Report Type: Spontaneous
  Country: GB (occurrence: GB)
  Receive Date: 20161206
  Receipt Date: 20161206
  Transmission Date: 20170207
  Serious: Yes (Other)
  Sender: FDA-Public Use
  Company Number: GB-TEVA-716296ACC

PATIENT
  Sex: Male

DRUGS (3)
  1. BRIVIACT [Suspect]
     Active Substance: BRIVARACETAM
     Dosage: 100 MILLIGRAM DAILY; 50 MG, 3X/DAY (TID)
     Route: 048
  2. LEVETIRACETAM. [Suspect]
     Active Substance: LEVETIRACETAM
     Indication: EPILEPSY
     Dosage: 1000 MG IN MORNING AND 750 MG IN NIGHT,  2X/DAY (BID)
     Route: 048
  3. BRIVIACT [Suspect]
     Active Substance: BRIVARACETAM
     Indication: EPILEPSY
     Dosage: 50 MILLIGRAM DAILY; 25 MG, 2X/DAY (BID)
     Route: 048

REACTIONS (3)
  - Aggression [Unknown]
  - Suicidal ideation [Unknown]
  - Mutism [Unknown]
